FAERS Safety Report 15890356 (Version 7)
Quarter: 2019Q3

REPORT INFORMATION
  Report Type: Report from Study
  Country: None (occurrence: CH)
  Receive Date: 20190130
  Receipt Date: 20190914
  Transmission Date: 20191004
  Serious: Yes (Hospitalization, Other)
  Sender: FDA-Public Use
  Company Number: CH-ABBVIE-19S-151-2641806-00

PATIENT
  Age: 80 Year
  Sex: Male

DRUGS (8)
  1. DUODOPA [Suspect]
     Active Substance: CARBIDOPA\LEVODOPA
     Indication: PARKINSON^S DISEASE
     Route: 050
     Dates: start: 20150421, end: 20180907
  2. DUODOPA [Suspect]
     Active Substance: CARBIDOPA\LEVODOPA
     Dosage: MD: 9 ML, CRD: 4.1 ML/H, CRN: 1.7 ML/H, EXTRA
     Route: 050
     Dates: start: 20180907, end: 20181024
  3. DUODOPA [Suspect]
     Active Substance: CARBIDOPA\LEVODOPA
     Dosage: NO MD, CD DAY: 4 ML/H, CD NIGHT: 1.7 ML/H, ED: 3 ML/H, 24 H THERAPY
     Route: 050
     Dates: start: 2019, end: 20190224
  4. DUODOPA [Suspect]
     Active Substance: CARBIDOPA\LEVODOPA
     Dosage: MD: 8.5 ML, CD DAY: 4 ML/H, CD NIGHT: 1.7 ML/H, ED: 3 ML/H, 24 H THERAPY
     Route: 050
     Dates: start: 20190224, end: 20190726
  5. DUODOPA [Suspect]
     Active Substance: CARBIDOPA\LEVODOPA
     Dosage: MD: 8.5 ML, CD DAY: 3.8 ML/H, CD NIGHT: 1.7 ML/H, ED: 1.5 ML/H, 24 H THERAPY
     Route: 050
     Dates: start: 20190729
  6. DUODOPA [Suspect]
     Active Substance: CARBIDOPA\LEVODOPA
     Dosage: MD: 8.5 ML, CD DAY: 3.8 ML/H, CD NIGHT: 1.7 ML/H, ED: 3 ML/H, 24 H THERAPY
     Route: 050
     Dates: start: 20190726, end: 20190729
  7. DUODOPA [Suspect]
     Active Substance: CARBIDOPA\LEVODOPA
     Dosage: MD: 8.5 ML, CRD: 4 ML/H, CRN: 1.7 ML/H, ED 3 ML 24 H THERAPY
     Route: 050
     Dates: start: 20190128, end: 2019
  8. DUODOPA [Suspect]
     Active Substance: CARBIDOPA\LEVODOPA
     Dosage: MD: 9 ML, CRD: 3.9 ML/H, CRN: 1.7 ML/H, ED 3 ML 24 H THERAPY
     Route: 050
     Dates: start: 20181024, end: 20190121

REACTIONS (21)
  - Device deployment issue [Recovered/Resolved]
  - Emotional distress [Unknown]
  - Hyperhidrosis [Unknown]
  - Anxiety [Unknown]
  - Cognitive disorder [Not Recovered/Not Resolved]
  - Confusional state [Not Recovered/Not Resolved]
  - Device issue [Recovered/Resolved]
  - Dystonia [Unknown]
  - Dyskinesia [Unknown]
  - Intentional device misuse [Recovered/Resolved]
  - Aggression [Unknown]
  - Decreased appetite [Unknown]
  - Restlessness [Recovered/Resolved]
  - Agitation [Recovering/Resolving]
  - Weight decreased [Unknown]
  - Freezing phenomenon [Recovered/Resolved]
  - Enteral nutrition [Unknown]
  - Dementia [Not Recovered/Not Resolved]
  - Device dislocation [Recovered/Resolved]
  - Dystonia [Recovered/Resolved]
  - Musculoskeletal stiffness [Recovered/Resolved]

NARRATIVE: CASE EVENT DATE: 20190227
